FAERS Safety Report 5199493-4 (Version None)
Quarter: 2006Q4

REPORT INFORMATION
  Report Type: 
  Country: None (occurrence: None)
  Receive Date: 20061229
  Receipt Date: 20061215
  Transmission Date: 20070319
  Serious: Yes (Hospitalization)
  Sender: FDA-Public Use
  Company Number: TCI2006A01915

PATIENT
  Age: 83 Year
  Sex: Male

DRUGS (16)
  1. ACTOS [Suspect]
     Indication: DIABETES MELLITUS NON-INSULIN-DEPENDENT
     Dosage: 15 MG (15 MG, 1 IN 1 D) PER ORAL
     Route: 048
     Dates: start: 20051115
  2. PLACEBO (MITIGLINIDE CALCIUM HYDRATE) [Suspect]
     Indication: DIABETES MELLITUS NON-INSULIN-DEPENDENT
     Dosage: PLACEBO (2 IN 1 D), PER ORAL; SEE IMAGE
     Route: 048
     Dates: start: 20060314, end: 20060314
  3. PLACEBO (MITIGLINIDE CALCIUM HYDRATE) [Suspect]
     Indication: DIABETES MELLITUS NON-INSULIN-DEPENDENT
     Dosage: PLACEBO (2 IN 1 D), PER ORAL; SEE IMAGE
     Route: 048
     Dates: start: 20060315, end: 20060505
  4. PLACEBO (MITIGLINIDE CALCIUM HYDRATE) [Suspect]
     Indication: DIABETES MELLITUS NON-INSULIN-DEPENDENT
     Dosage: PLACEBO (2 IN 1 D), PER ORAL; SEE IMAGE
     Route: 048
     Dates: start: 20060506, end: 20060506
  5. CALSLOT TABLETS (MANIDIPINE HYDROCHLORIDE) [Concomitant]
  6. LIPITOR [Concomitant]
  7. FLUMETHOLON (FLUOROMETHOLONE) [Concomitant]
  8. TIMOLOL MALEATE [Concomitant]
  9. XALATAN [Concomitant]
  10. AZOPT [Concomitant]
  11. LEVOFLOXACIN [Concomitant]
  12. PURSENNIDE (SENNA ALEXANDRINA LEAF) [Concomitant]
  13. GULFAST (MITIGLINIDE CALCIUM HYDRATE) [Concomitant]
  14. SEISHOKU (SODIUM CHLORIDE) [Concomitant]
  15. OMNIPAQUE 140 [Concomitant]
  16. MAGNEVIST [Concomitant]

REACTIONS (5)
  - BLADDER CANCER [None]
  - BLOOD URINE PRESENT [None]
  - MALAISE [None]
  - PROSTATE EXAMINATION ABNORMAL [None]
  - PROTEIN URINE PRESENT [None]
